FAERS Safety Report 7109867-X (Version None)
Quarter: 2010Q4

REPORT INFORMATION
  Report Type: 
  Country: None (occurrence: None)
  Receive Date: 20101118
  Receipt Date: 20100909
  Transmission Date: 20110411
  Serious: No
  Sender: FDA-Public Use
  Company Number: PR-MYLANLABS-2010S1016652

PATIENT
  Age: 62 Year
  Sex: Female
  Weight: 90.72 kg

DRUGS (2)
  1. ALENDRONATE SODIUM [Suspect]
     Indication: OSTEOPOROSIS
     Route: 048
     Dates: start: 20100801
  2. RELAFEN [Concomitant]
     Indication: INFLAMMATION
     Dates: start: 20100801

REACTIONS (1)
  - MUSCULOSKELETAL PAIN [None]
